FAERS Safety Report 4461293-8 (Version None)
Quarter: 2004Q3

REPORT INFORMATION
  Report Type: 
  Country: None (occurrence: None)
  Receive Date: 20040928
  Receipt Date: 20030901
  Transmission Date: 20050211
  Serious: Yes (Hospitalization, Other)
  Sender: FDA-Public Use
  Company Number: GB-GLAXOSMITHKLINE-B0308139A

PATIENT
  Age: 59 Year
  Sex: Female

DRUGS (3)
  1. CIMETIDINE [Suspect]
     Indication: ABDOMINAL PAIN
     Dosage: 400MG TWICE PER DAY
     Route: 065
  2. METFORMIN HCL [Suspect]
     Dosage: 500MG THREE TIMES PER DAY
     Route: 048
     Dates: start: 19950101
  3. XENICAL [Suspect]
     Indication: DIABETES MELLITUS
     Dosage: 120MG THREE TIMES PER DAY
     Route: 065

REACTIONS (11)
  - ASTHENIA [None]
  - CIRCULATORY COLLAPSE [None]
  - DEPRESSED LEVEL OF CONSCIOUSNESS [None]
  - DIZZINESS [None]
  - DRUG INTERACTION [None]
  - DUODENAL ULCER [None]
  - DYSARTHRIA [None]
  - LACTIC ACIDOSIS [None]
  - PROTEIN URINE [None]
  - RENAL FAILURE ACUTE [None]
  - VISION BLURRED [None]
